FAERS Safety Report 9337698 (Version 1)
Quarter: 2013Q2

REPORT INFORMATION
  Report Type: Spontaneous
  Country: US (occurrence: US)
  Receive Date: 20130607
  Receipt Date: 20130607
  Transmission Date: 20140414
  Serious: No
  Sender: FDA-Public Use
  Company Number: US-009507513-1306USA002083

PATIENT
  Age: 56 Year
  Sex: Female

DRUGS (3)
  1. PROVENTIL [Suspect]
     Indication: BRONCHITIS CHRONIC
     Dosage: 2 PUFF EVERY 6 HOURS
     Route: 055
  2. PROVENTIL [Suspect]
     Indication: ASTHMA
  3. VENTOLIN (ALBUTEROL) [Concomitant]

REACTIONS (4)
  - Dyspnoea [Not Recovered/Not Resolved]
  - Cough [Not Recovered/Not Resolved]
  - Product quality issue [Unknown]
  - Drug dose omission [Unknown]
